FAERS Safety Report 25667690 (Version 2)
Quarter: 2025Q3

REPORT INFORMATION
  Report Type: Spontaneous
  Country: US (occurrence: US)
  Receive Date: 20250811
  Receipt Date: 20250917
  Transmission Date: 20251021
  Serious: Yes (Hospitalization)
  Sender: NOVO NORDISK
  Company Number: US-NOVOPROD-1414846

PATIENT
  Age: 86 Year
  Sex: Female

DRUGS (6)
  1. TRESIBA [Suspect]
     Active Substance: INSULIN DEGLUDEC
     Indication: Type 2 diabetes mellitus
     Dosage: 30 IU, BID
     Route: 058
     Dates: start: 202502, end: 2025
  2. TRESIBA [Suspect]
     Active Substance: INSULIN DEGLUDEC
     Dosage: 30 IU, QD IN MORNING
     Route: 058
     Dates: start: 20250306, end: 2025
  3. TRESIBA [Suspect]
     Active Substance: INSULIN DEGLUDEC
     Route: 058
     Dates: start: 2025, end: 2025
  4. TRESIBA [Suspect]
     Active Substance: INSULIN DEGLUDEC
     Dosage: 35 IU, QD
     Route: 058
     Dates: start: 20250805
  5. INSULIN LISPRO [Concomitant]
     Active Substance: INSULIN LISPRO
     Indication: Type 2 diabetes mellitus
  6. TOUJEO [Suspect]
     Active Substance: INSULIN GLARGINE
     Indication: Product used for unknown indication

REACTIONS (5)
  - Loss of consciousness [Recovered/Resolved]
  - Ligament sprain [Recovering/Resolving]
  - Fall [Not Recovered/Not Resolved]
  - Dizziness [Not Recovered/Not Resolved]
  - Fear of falling [Not Recovered/Not Resolved]

NARRATIVE: CASE EVENT DATE: 20250101
